FAERS Safety Report 5491617-4 (Version None)
Quarter: 2007Q4

REPORT INFORMATION
  Report Type: 
  Country: None (occurrence: None)
  Receive Date: 20071017
  Receipt Date: 20071017
  Transmission Date: 20080405
  Serious: Yes (Life-Threatening, Disabling)
  Sender: FDA-Public Use
  Company Number: None

PATIENT
  Age: 72 Year
  Sex: Female
  Weight: 62 kg

DRUGS (2)
  1. DASATINIB 70 MG BRISTOL-MYERS SQUIBB [Suspect]
     Indication: BLAST CELL CRISIS
     Dosage: 70 MG TWICE DAILY PO
     Route: 048
     Dates: start: 20070927, end: 20071003
  2. DASATINIB 70 MG BRISTOL-MYERS SQUIBB [Suspect]
     Indication: CHRONIC MYELOID LEUKAEMIA
     Dosage: 70 MG TWICE DAILY PO
     Route: 048
     Dates: start: 20070927, end: 20071003

REACTIONS (4)
  - ACUTE MYOCARDIAL INFARCTION [None]
  - ATRIOVENTRICULAR BLOCK COMPLETE [None]
  - HAEMODYNAMIC INSTABILITY [None]
  - REFUSAL OF TREATMENT BY RELATIVE [None]
